FAERS Safety Report 9292096 (Version 1)
Quarter: 2013Q2

REPORT INFORMATION
  Report Type: Spontaneous
  Country: US (occurrence: US)
  Receive Date: 20130516
  Receipt Date: 20130516
  Transmission Date: 20140414
  Serious: Yes (Other)
  Sender: FDA-Public Use
  Company Number: US-PFIZER INC-2013145572

PATIENT
  Age: 67 Year
  Sex: Female
  Weight: 46.7 kg

DRUGS (5)
  1. PREMARIN [Suspect]
     Indication: VAGINOPLASTY
     Dosage: 0.5 G, 3X/WEEK
     Route: 067
     Dates: start: 201301
  2. PREMARIN [Suspect]
     Indication: HYSTERECTOMY
  3. PRAVASTATIN [Concomitant]
     Indication: BLOOD CHOLESTEROL INCREASED
     Dosage: 10 MG, 1X/DAY
  4. ASPIRIN [Concomitant]
     Indication: ARTHRITIS
     Dosage: 325 MG, 1X/DAY
  5. ASPIRIN [Concomitant]
     Indication: CARDIOVASCULAR EVENT PROPHYLAXIS

REACTIONS (1)
  - Vaginal haemorrhage [Unknown]
